FAERS Safety Report 6003248-8 (Version None)
Quarter: 2008Q4

REPORT INFORMATION
  Report Type: 
  Country: None (occurrence: None)
  Receive Date: 20081216
  Receipt Date: 20081205
  Transmission Date: 20090506
  Serious: Yes (Death)
  Sender: FDA-Public Use
  Company Number: GB-BAXTER-2008BH013513

PATIENT
  Age: 64 Year
  Sex: Female

DRUGS (6)
  1. CYCLOPHOSPHAMIDE [Suspect]
     Indication: DIFFUSE LARGE B-CELL LYMPHOMA
     Dosage: DOSE UNIT:UNKNOWN
     Route: 065
     Dates: start: 20080301, end: 20080501
  2. DOXORUBICIN HCL [Suspect]
     Indication: DIFFUSE LARGE B-CELL LYMPHOMA
     Dosage: DOSE UNIT:UNKNOWN
     Route: 065
     Dates: start: 20080301, end: 20080501
  3. PREDNISONE TAB [Suspect]
     Indication: DIFFUSE LARGE B-CELL LYMPHOMA
     Dosage: DOSE UNIT:UNKNOWN
     Route: 065
     Dates: start: 20080301, end: 20080501
  4. RITUXIMAB [Suspect]
     Indication: DIFFUSE LARGE B-CELL LYMPHOMA
     Dosage: DOSE UNIT:UNKNOWN
     Route: 065
  5. VINCRISTINE SULFATE [Suspect]
     Indication: DIFFUSE LARGE B-CELL LYMPHOMA
     Dosage: DOSE UNIT:UNKNOWN
     Route: 065
     Dates: start: 20080301, end: 20080501
  6. METHOTREXATE [Concomitant]
     Route: 039
     Dates: end: 20080313

REACTIONS (1)
  - LEUKOENCEPHALOPATHY [None]
